FAERS Safety Report 8339561-9 (Version None)
Quarter: 2012Q2

REPORT INFORMATION
  Report Type: 
  Country: None (occurrence: None)
  Receive Date: 20120507
  Receipt Date: 20120501
  Transmission Date: 20120825
  Serious: Yes (Other)
  Sender: FDA-Public Use
  Company Number: PHEH2012US009274

PATIENT
  Sex: Male

DRUGS (3)
  1. REVLIMID [Concomitant]
  2. GLEEVEC [Suspect]
     Dosage: UNK
     Dates: start: 20010701
  3. VELCADE [Concomitant]

REACTIONS (1)
  - MULTIPLE MYELOMA [None]
